FAERS Safety Report 5166091-8 (Version None)
Quarter: 2006Q4

REPORT INFORMATION
  Report Type: 
  Country: None (occurrence: None)
  Receive Date: 20061206
  Receipt Date: 20061129
  Transmission Date: 20070319
  Serious: Yes (Death)
  Sender: FDA-Public Use
  Company Number: FR-JNJFOC-20061106720

PATIENT
  Age: 71 Year
  Sex: Female

DRUGS (2)
  1. REMICADE [Suspect]
     Dosage: 21 DOSES TOTAL, DISCONTINUED BETWEEN SEP-02 AND JUN-03
     Route: 042
  2. REMICADE [Suspect]
     Indication: RHEUMATOID ARTHRITIS
     Dosage: 300 MG
     Route: 042

REACTIONS (2)
  - CENTRAL NERVOUS SYSTEM LYMPHOMA [None]
  - INFECTION [None]
